FAERS Safety Report 12241285 (Version 1)
Quarter: 2016Q2

REPORT INFORMATION
  Report Type: Spontaneous
  Country: US (occurrence: None)
  Receive Date: 20160405
  Receipt Date: 20160405
  Transmission Date: 20160815
  Serious: No
  Sender: FDA-Public Use
  Company Number: None

PATIENT
  Age: 63 Year
  Sex: Female

DRUGS (1)
  1. ORENCIA [Suspect]
     Active Substance: ABATACEPT
     Route: 058
     Dates: start: 20150126, end: 20160201

REACTIONS (3)
  - Therapy cessation [None]
  - Candida infection [None]
  - Oral herpes [None]

NARRATIVE: CASE EVENT DATE: 20150201
